FAERS Safety Report 12653930 (Version 1)
Quarter: 2016Q3

REPORT INFORMATION
  Report Type: Spontaneous
  Country: US (occurrence: US)
  Receive Date: 20160816
  Receipt Date: 20160816
  Transmission Date: 20161109
  Serious: No
  Sender: FDA-Public Use
  Company Number: US-ASTRAZENECA-2016SE87467

PATIENT
  Age: 44 Year
  Sex: Male
  Weight: 72.6 kg

DRUGS (8)
  1. PREDNISONE. [Concomitant]
     Active Substance: PREDNISONE
     Indication: GASTROOESOPHAGEAL REFLUX DISEASE
     Route: 048
     Dates: start: 20160616, end: 20160620
  2. PREDNISONE. [Concomitant]
     Active Substance: PREDNISONE
     Indication: OESOPHAGEAL PAIN
     Route: 048
     Dates: start: 20160616, end: 20160620
  3. MOMETASONE [Concomitant]
     Active Substance: MOMETASONE
     Indication: GASTROOESOPHAGEAL REFLUX DISEASE
     Route: 045
     Dates: start: 20160616
  4. MOMETASONE [Concomitant]
     Active Substance: MOMETASONE
     Indication: PHARYNGEAL OEDEMA
     Route: 045
     Dates: start: 20160616
  5. NEXIUM 24HR [Suspect]
     Active Substance: ESOMEPRAZOLE MAGNESIUM
     Indication: GASTROOESOPHAGEAL REFLUX DISEASE
     Route: 048
     Dates: start: 20160616, end: 20160726
  6. MOMETASONE [Concomitant]
     Active Substance: MOMETASONE
     Indication: THROAT IRRITATION
     Route: 045
     Dates: start: 20160616
  7. MOMETASONE [Concomitant]
     Active Substance: MOMETASONE
     Indication: DYSPNOEA
     Route: 045
     Dates: start: 20160616
  8. MOMETASONE [Concomitant]
     Active Substance: MOMETASONE
     Indication: BURN OESOPHAGEAL
     Route: 045
     Dates: start: 20160616

REACTIONS (5)
  - Alopecia [Not Recovered/Not Resolved]
  - Intentional product misuse [Unknown]
  - Product use issue [Unknown]
  - Drug ineffective [Unknown]
  - Disease progression [Not Recovered/Not Resolved]

NARRATIVE: CASE EVENT DATE: 20160616
